FAERS Safety Report 9168917 (Version 1)
Quarter: 2013Q1

REPORT INFORMATION
  Report Type: Spontaneous
  Country: US (occurrence: None)
  Receive Date: 20130314
  Receipt Date: 20130314
  Transmission Date: 20140127
  Serious: No
  Sender: FDA-Public Use
  Company Number: None

PATIENT
  Age: 64 Year
  Sex: Female
  Weight: 63.5 kg

DRUGS (2)
  1. DETROL LA [Suspect]
     Indication: BLADDER DISORDER
     Dosage: 2MG. FULL CAPSUL ONCE A DAY ?4MG CUT DOWN TO 1/2 ONCE A DAY NDC 0009 5191 99?END OF JAN TO MARCH 1ST
  2. DETROL LA [Suspect]
     Indication: HERNIA
     Dosage: 2MG. FULL CAPSUL ONCE A DAY ?4MG CUT DOWN TO 1/2 ONCE A DAY NDC 0009 5191 99?END OF JAN TO MARCH 1ST

REACTIONS (4)
  - Eye pain [None]
  - Urticaria [None]
  - Pruritus [None]
  - Rash macular [None]
